FAERS Safety Report 8942944 (Version 1)
Quarter: 2012Q4

REPORT INFORMATION
  Report Type: 
  Country: SE (occurrence: SE)
  Receive Date: 20121204
  Receipt Date: 20121204
  Transmission Date: 20130627
  Serious: Yes (Death)
  Sender: FDA-Public Use
  Company Number: SE-PFIZER INC-2012300670

PATIENT
  Age: 42 Year
  Sex: Female

DRUGS (6)
  1. HYDROXYZINE HCL [Suspect]
     Dosage: UNK
  2. PREGABALIN [Suspect]
     Dosage: UNK
  3. HERCEPTIN [Suspect]
     Indication: MALIGNANT BREAST NEOPLASM
     Dosage: UNK
     Route: 042
  4. DIAZEPAM [Suspect]
     Dosage: UNK
  5. MIRTAZAPINE [Suspect]
     Dosage: UNK
  6. CODEINE PHOSPHATE [Suspect]
     Dosage: UNK

REACTIONS (2)
  - Completed suicide [Fatal]
  - Poisoning [Fatal]
